FAERS Safety Report 11902826 (Version 1)
Quarter: 2016Q1

REPORT INFORMATION
  Report Type: Spontaneous
  Country: JP (occurrence: JP)
  Receive Date: 20160108
  Receipt Date: 20160108
  Transmission Date: 20160526
  Serious: Yes (Other)
  Sender: FDA-Public Use
  Company Number: JP-BAYER-2016-003979

PATIENT
  Sex: Male

DRUGS (1)
  1. BAYASPIRIN [Suspect]
     Active Substance: ASPIRIN
     Dosage: UNK
     Route: 048
     Dates: start: 1996

REACTIONS (3)
  - Cardiac failure [None]
  - Vasodilatation [None]
  - Anaemia [None]
